FAERS Safety Report 9642057 (Version 1)
Quarter: 2013Q4

REPORT INFORMATION
  Report Type: Spontaneous
  Country: JP (occurrence: JP)
  Receive Date: 20131023
  Receipt Date: 20131023
  Transmission Date: 20140711
  Serious: Yes (Disabling, Other)
  Sender: FDA-Public Use
  Company Number: PHHY2013JP115566

PATIENT
  Sex: Female

DRUGS (1)
  1. TRIAMCINOLONE [Suspect]
     Dosage: 20 MG, QMO; APPROXIMATELY 30 INJECTIONS IN TOTAL

REACTIONS (3)
  - Joint contracture [Recovered/Resolved]
  - Tendon rupture [Recovered/Resolved]
  - Arthralgia [Recovered/Resolved]
